FAERS Safety Report 24167274 (Version 1)
Quarter: 2024Q3

REPORT INFORMATION
  Report Type: Report from Study
  Country: US (occurrence: US)
  Receive Date: 20240802
  Receipt Date: 20240802
  Transmission Date: 20241016
  Serious: Yes (Hospitalization)
  Sender: AGIOS PHARMACEUTICALS
  Company Number: US-AGIOS-2407US03847

PATIENT
  Sex: Male

DRUGS (3)
  1. MITAPIVAT [Suspect]
     Active Substance: MITAPIVAT
     Indication: Anaemia of chronic disease
     Dosage: 5 MILLIGRAM, BID
     Route: 048
     Dates: start: 20220917
  2. MITAPIVAT [Suspect]
     Active Substance: MITAPIVAT
     Indication: Thalassaemia alpha
  3. MITAPIVAT [Suspect]
     Active Substance: MITAPIVAT
     Indication: Chronic kidney disease

REACTIONS (2)
  - Heart rate increased [Unknown]
  - Off label use [Unknown]
